FAERS Safety Report 7027258-7 (Version None)
Quarter: 2010Q4

REPORT INFORMATION
  Report Type: 
  Country: None (occurrence: None)
  Receive Date: 20101004
  Receipt Date: 20100924
  Transmission Date: 20110411
  Serious: Yes (Other)
  Sender: FDA-Public Use
  Company Number: CHPA2010US15353

PATIENT
  Age: 59 Year
  Sex: Male
  Weight: 88.435 kg

DRUGS (2)
  1. VOLTAREN [Suspect]
     Dosage: 2 G, 2 TO 3 TIMES DAILY
     Route: 061
     Dates: start: 20090101, end: 20090101
  2. VOLTAREN [Suspect]
     Dosage: 2 GRAMS ONCE IN THE MORNING
     Route: 061
     Dates: start: 20100924, end: 20100924

REACTIONS (2)
  - DRUG INEFFECTIVE FOR UNAPPROVED INDICATION [None]
  - KNEE ARTHROPLASTY [None]
